FAERS Safety Report 10214029 (Version 1)
Quarter: 2014Q2

REPORT INFORMATION
  Report Type: Spontaneous
  Country: GB (occurrence: GB)
  Receive Date: 20140603
  Receipt Date: 20140603
  Transmission Date: 20141212
  Serious: Yes (Disabling, Other)
  Sender: FDA-Public Use
  Company Number: GB-SA-2014SA066708

PATIENT
  Age: 33 Year
  Sex: Female
  Weight: 107.95 kg

DRUGS (3)
  1. CLEXANE [Suspect]
     Indication: THROMBOSIS PROPHYLAXIS
     Dosage: 6ML DAILY IN TUMMY
     Route: 051
     Dates: start: 20140506
  2. SALBUTAMOL [Concomitant]
  3. CORTICOSTEROID NOS [Concomitant]

REACTIONS (4)
  - Injection site pain [Not Recovered/Not Resolved]
  - Presyncope [Not Recovered/Not Resolved]
  - Lethargy [Not Recovered/Not Resolved]
  - Asthenia [Not Recovered/Not Resolved]
